FAERS Safety Report 7415494-7 (Version None)
Quarter: 2011Q2

REPORT INFORMATION
  Report Type: 
  Country: None (occurrence: None)
  Receive Date: 20110414
  Receipt Date: 20110404
  Transmission Date: 20111010
  Serious: Yes (Hospitalization)
  Sender: FDA-Public Use
  Company Number: JP-JNJFOC-20101100315

PATIENT
  Age: 11 Year
  Sex: Male

DRUGS (44)
  1. FENTANYL CITRATE [Suspect]
     Indication: ILL-DEFINED DISORDER
     Route: 041
  2. DORMICUM [Suspect]
     Indication: ILL-DEFINED DISORDER
     Route: 041
  3. DIAZEPAM [Suspect]
     Route: 048
  4. ULTIVA [Suspect]
     Indication: ILL-DEFINED DISORDER
     Route: 042
  5. GASTER [Suspect]
     Route: 041
  6. GASTER [Suspect]
     Indication: ILL-DEFINED DISORDER
     Route: 048
  7. DIAZEPAM [Suspect]
     Indication: ILL-DEFINED DISORDER
     Route: 048
  8. TAKEPRON [Suspect]
     Indication: ILL-DEFINED DISORDER
     Route: 048
  9. RINGERS SOLUTION [Suspect]
     Indication: ILL-DEFINED DISORDER
     Route: 048
  10. HEPARIN SODIUM [Suspect]
     Indication: ILL-DEFINED DISORDER
     Route: 042
  11. DEXMEDETOMIDINE HYDROCHLORIDE [Suspect]
     Indication: ILL-DEFINED DISORDER
     Route: 041
  12. XYLOCAINE [Suspect]
     Indication: ILL-DEFINED DISORDER
     Route: 042
  13. RISPERIDONE [Suspect]
     Indication: ILL-DEFINED DISORDER
     Route: 048
  14. PIPERACILLIN SODIUM [Suspect]
     Indication: ILL-DEFINED DISORDER
     Route: 042
  15. RINGERS SOLUTION [Suspect]
     Route: 048
  16. MORPHINE HCL ELIXIR [Suspect]
     Indication: ILL-DEFINED DISORDER
     Route: 048
  17. LASIX [Suspect]
     Indication: ILL-DEFINED DISORDER
     Route: 048
  18. NICARDIPINE HYDROCHLORIDE [Suspect]
     Indication: ILL-DEFINED DISORDER
     Route: 041
  19. SODIUM HYALURONATE [Suspect]
     Indication: ILL-DEFINED DISORDER
     Route: 065
  20. AMPICILLIN [Suspect]
     Indication: ILL-DEFINED DISORDER
     Route: 048
  21. HYDROXYZINE [Suspect]
     Indication: ILL-DEFINED DISORDER
     Route: 042
  22. PHENOBARBITAL SRT [Suspect]
     Indication: ILL-DEFINED DISORDER
     Route: 048
  23. ROCEPHIN [Suspect]
     Indication: INFECTION
     Route: 042
  24. LACTIC ACID [Suspect]
     Indication: ILL-DEFINED DISORDER
     Route: 048
  25. TRICLORYL [Suspect]
     Indication: ILL-DEFINED DISORDER
     Route: 048
  26. LAXOBERON [Suspect]
     Indication: ILL-DEFINED DISORDER
     Route: 048
  27. GLYCEOL [Suspect]
     Indication: ILL-DEFINED DISORDER
     Route: 041
  28. DEXAMETHASONE SODIUM PHOSPHATE [Suspect]
     Indication: ILL-DEFINED DISORDER
     Route: 041
  29. ATROPINE SULFATE [Suspect]
     Indication: ILL-DEFINED DISORDER
     Route: 042
  30. CEFAZOLIN SODIUM [Suspect]
     Indication: ILL-DEFINED DISORDER
     Route: 041
  31. ROCURONIUM BROMIDE [Suspect]
     Indication: ILL-DEFINED DISORDER
     Route: 042
  32. OFLOXACIN [Concomitant]
     Route: 065
  33. CALONAL [Suspect]
     Indication: PYREXIA
     Route: 048
  34. CLINDAMYCIN [Suspect]
     Indication: ILL-DEFINED DISORDER
     Route: 042
  35. ALDACTONE [Suspect]
     Indication: ILL-DEFINED DISORDER
     Route: 048
  36. OMEPRAZOLE [Suspect]
     Indication: ILL-DEFINED DISORDER
     Route: 042
  37. HEPARIN SODIUM [Suspect]
     Route: 041
  38. EPINEPHRINE [Suspect]
     Indication: ILL-DEFINED DISORDER
     Route: 042
  39. CALCICOL [Suspect]
     Indication: ILL-DEFINED DISORDER
     Route: 041
  40. PANTHENOL [Suspect]
     Indication: ILL-DEFINED DISORDER
     Route: 042
  41. FLURBIPROFEN [Suspect]
     Indication: ILL-DEFINED DISORDER
     Route: 042
  42. GLYCERINE [Suspect]
     Indication: CONSTIPATION
     Route: 054
  43. DEPAS [Suspect]
     Indication: ILL-DEFINED DISORDER
     Route: 048
  44. ANHIBA [Suspect]
     Indication: ILL-DEFINED DISORDER
     Route: 054

REACTIONS (1)
  - DRUG RASH WITH EOSINOPHILIA AND SYSTEMIC SYMPTOMS [None]
